FAERS Safety Report 24071520 (Version 1)
Quarter: 2024Q3

REPORT INFORMATION
  Report Type: Report from Study
  Country: DE (occurrence: DE)
  Receive Date: 20240710
  Receipt Date: 20240710
  Transmission Date: 20241016
  Serious: No
  Sender: ROCHE
  Company Number: DE-ROCHE-3351073

PATIENT
  Age: 9 Year
  Sex: Female
  Weight: 60.0 kg

DRUGS (2)
  1. EVRYSDI [Suspect]
     Active Substance: RISDIPLAM
     Indication: Muscle atrophy
     Dosage: ON 18/APR/2023, 30/JAN/2024, SHE RECEIVED MOST RECENT DOSE OF RISDIPLAM.
     Route: 048
     Dates: start: 20220119
  2. CHOLECALCIFEROL [Concomitant]
     Active Substance: CHOLECALCIFEROL

REACTIONS (3)
  - Gastrointestinal infection [Recovered/Resolved]
  - Urticaria aquagenic [Recovered/Resolved]
  - Drug eruption [Recovered/Resolved]

NARRATIVE: CASE EVENT DATE: 20230306
